FAERS Safety Report 13836324 (Version 14)
Quarter: 2022Q3

REPORT INFORMATION
  Report Type: Report from Study
  Country: BR (occurrence: BR)
  Receive Date: 20170804
  Receipt Date: 20220809
  Transmission Date: 20221026
  Serious: Yes (Hospitalization, Other)
  Sender: FDA-Public Use
  Company Number: PHHY2017BR113598

PATIENT
  Sex: Male
  Weight: 100 kg

DRUGS (9)
  1. COSENTYX [Suspect]
     Active Substance: SECUKINUMAB
     Indication: Psoriasis
     Dosage: 300 MG (2 PENS), QMO
     Route: 058
     Dates: start: 20161025
  2. COSENTYX [Suspect]
     Active Substance: SECUKINUMAB
     Indication: Osteoarthritis
     Dosage: UNK
     Route: 065
     Dates: start: 20171114
  3. COSENTYX [Suspect]
     Active Substance: SECUKINUMAB
     Dosage: UNK
     Route: 065
     Dates: start: 20190507
  4. COSENTYX [Suspect]
     Active Substance: SECUKINUMAB
     Dosage: UNK
     Route: 065
     Dates: start: 202011
  5. COSENTYX [Suspect]
     Active Substance: SECUKINUMAB
     Dosage: UNK
     Route: 065
     Dates: start: 20220202
  6. COSENTYX [Suspect]
     Active Substance: SECUKINUMAB
     Dosage: 300 MG, UNKNOWN
     Route: 065
  7. RISPERIDONE [Suspect]
     Active Substance: RISPERIDONE
     Indication: Product used for unknown indication
     Dosage: UNK
     Route: 065
  8. CEFADROXIL [Concomitant]
     Active Substance: CEFADROXIL
     Indication: Product used for unknown indication
     Dosage: UNK
     Route: 065
  9. DEXTROSE [Concomitant]
     Active Substance: DEXTROSE
     Indication: Product used for unknown indication
     Dosage: UNK
     Route: 065

REACTIONS (58)
  - Hernia [Unknown]
  - Spinal disorder [Unknown]
  - Drug abuse [Unknown]
  - Dysentery [Unknown]
  - Abdominal pain [Recovering/Resolving]
  - Ascites [Unknown]
  - Abdominal discomfort [Unknown]
  - Syncope [Unknown]
  - Diphtheria [Unknown]
  - Pain [Unknown]
  - Weight decreased [Recovering/Resolving]
  - Gait disturbance [Unknown]
  - Spondylitis [Recovering/Resolving]
  - Joint lock [Unknown]
  - Osteoarthritis [Recovering/Resolving]
  - Blood disorder [Unknown]
  - Injection site discolouration [Recovering/Resolving]
  - Nightmare [Unknown]
  - Ear disorder [Unknown]
  - Swelling face [Unknown]
  - Influenza [Unknown]
  - Cough [Unknown]
  - Pyrexia [Unknown]
  - Head discomfort [Unknown]
  - Asthenia [Unknown]
  - Nasal dryness [Unknown]
  - Laziness [Unknown]
  - Abnormal sensation in eye [Unknown]
  - Feeling abnormal [Unknown]
  - Dysphonia [Unknown]
  - Productive cough [Unknown]
  - Inflammation [Unknown]
  - Decreased immune responsiveness [Unknown]
  - Spinal pain [Unknown]
  - Injury [Unknown]
  - Fatigue [Unknown]
  - Stress [Recovering/Resolving]
  - Sinusitis [Unknown]
  - Psoriasis [Unknown]
  - Skin exfoliation [Unknown]
  - Skin wound [Recovering/Resolving]
  - Scab [Unknown]
  - Skin lesion [Unknown]
  - Skin discolouration [Recovering/Resolving]
  - Pruritus [Recovered/Resolved with Sequelae]
  - Eating disorder [Unknown]
  - Affect lability [Unknown]
  - Bone pain [Unknown]
  - Swelling [Unknown]
  - Back pain [Recovering/Resolving]
  - Breakthrough pain [Recovering/Resolving]
  - Anger [Unknown]
  - Spinal column injury [Unknown]
  - Hypoaesthesia [Unknown]
  - Scratch [Recovering/Resolving]
  - Ill-defined disorder [Recovering/Resolving]
  - Extra dose administered [Unknown]
  - Product use in unapproved indication [Not Recovered/Not Resolved]

NARRATIVE: CASE EVENT DATE: 20160101
